FAERS Safety Report 19302845 (Version 1)
Quarter: 2021Q2

REPORT INFORMATION
  Report Type: Spontaneous
  Country: CN (occurrence: CN)
  Receive Date: 20210525
  Receipt Date: 20210525
  Transmission Date: 20210717
  Serious: Yes (Life-Threatening)
  Sender: FDA-Public Use
  Company Number: CN-BAXTER-2021BAX012640

PATIENT
  Age: 34 Year
  Sex: Female
  Weight: 44 kg

DRUGS (6)
  1. ENDOXAN [Suspect]
     Active Substance: CYCLOPHOSPHAMIDE
     Indication: MALIGNANT MEDIASTINAL NEOPLASM
     Dosage: CYCLOPHOSPHAMIDE 700 MG + 0.9% SODIUM CHLORIDE 250 ML
     Route: 041
     Dates: start: 20210502, end: 20210502
  2. 5% GLUCOSE  INJECTION [Suspect]
     Active Substance: DEXTROSE
     Indication: MEDICATION DILUTION
     Dosage: GLUCOSE 250 ML + PIRARUBICIN HYDROCHLORIDE 70 MG
     Route: 041
     Dates: start: 20210502, end: 20210502
  3. 0.9% SODIUM CHLORIDE INJECTION [Suspect]
     Active Substance: SODIUM CHLORIDE
     Indication: MEDICATION DILUTION
     Dosage: 0.9% SODIUM CHLORIDE 250 ML + CYCLOPHOSPHAMIDE 700 MG
     Route: 041
     Dates: start: 20210502, end: 20210502
  4. 0.9% SODIUM CHLORIDE INJECTION [Suspect]
     Active Substance: SODIUM CHLORIDE
     Dosage: 0.9% SODIUM CHLORIDE 250 ML + CISPLATIN 70 MG
     Route: 041
     Dates: start: 20210502, end: 20210502
  5. CISPLATIN. [Suspect]
     Active Substance: CISPLATIN
     Indication: MALIGNANT MEDIASTINAL NEOPLASM
     Dosage: CISPLATIN 70 MG + 0.9% SODIUM CHLORIDE 250 ML
     Route: 041
     Dates: start: 20210502, end: 20210502
  6. PIRARUBICIN HYDROCHLORIDE [Suspect]
     Active Substance: PIRARUBICIN HYDROCHLORIDE
     Indication: MALIGNANT MEDIASTINAL NEOPLASM
     Dosage: PIRARUBICIN HYDROCHLORIDE 70 MG + GLUCOSE 250 ML
     Route: 041
     Dates: start: 20210502, end: 20210502

REACTIONS (1)
  - Myelosuppression [Unknown]

NARRATIVE: CASE EVENT DATE: 20210512
